FAERS Safety Report 24166691 (Version 2)
Quarter: 2024Q3

REPORT INFORMATION
  Report Type: Spontaneous
  Country: US (occurrence: US)
  Receive Date: 20240802
  Receipt Date: 20240809
  Transmission Date: 20241016
  Serious: Yes (Hospitalization, Other)
  Sender: RANBAXY
  Company Number: US-SUN PHARMACEUTICAL INDUSTRIES LTD-2024R1-459755

PATIENT
  Age: 80 Year
  Sex: Female

DRUGS (9)
  1. EPINEPHRINE [Suspect]
     Active Substance: EPINEPHRINE
     Indication: Shock
     Dosage: UNK
     Route: 065
  2. METOPROLOL [Suspect]
     Active Substance: METOPROLOL
     Indication: Left ventricle outflow tract obstruction
     Dosage: UNK
     Route: 048
  3. NOREPINEPHRINE [Suspect]
     Active Substance: NOREPINEPHRINE\NOREPINEPHRINE BITARTRATE
     Indication: Shock
     Dosage: UNK
     Route: 065
  4. NOREPINEPHRINE [Suspect]
     Active Substance: NOREPINEPHRINE\NOREPINEPHRINE BITARTRATE
     Indication: Left ventricle outflow tract obstruction
  5. ESMOLOL [Suspect]
     Active Substance: ESMOLOL HYDROCHLORIDE
     Indication: Left ventricle outflow tract obstruction
     Dosage: UNK
     Route: 042
  6. MIDODRINE [Suspect]
     Active Substance: MIDODRINE
     Indication: Left ventricle outflow tract obstruction
     Dosage: UNK
     Route: 065
  7. PHENYLEPHRINE [Suspect]
     Active Substance: PHENYLEPHRINE HYDROCHLORIDE
     Indication: Left ventricle outflow tract obstruction
     Dosage: UNK
     Route: 065
  8. VASOPRESSIN [Suspect]
     Active Substance: VASOPRESSIN
     Indication: Left ventricle outflow tract obstruction
     Dosage: UNK
     Route: 065
  9. VASOPRESSIN [Suspect]
     Active Substance: VASOPRESSIN
     Indication: Shock

REACTIONS (2)
  - Drug ineffective [Unknown]
  - Condition aggravated [Unknown]
